FAERS Safety Report 5711737-6 (Version None)
Quarter: 2008Q2

REPORT INFORMATION
  Report Type: 
  Country: None (occurrence: None)
  Receive Date: 20080416
  Receipt Date: 20080408
  Transmission Date: 20081010
  Serious: Yes (Death, Hospitalization, Other)
  Sender: FDA-Public Use
  Company Number: TAP2007Q01582

PATIENT
  Age: 96 Year
  Sex: Male

DRUGS (6)
  1. LUPRON DEPOT-3 [Suspect]
     Indication: PROSTATE CANCER
     Dosage: 22.5 MG (22.5 MG, 1 IN 3 M, INTRAMUSCULAR)
     Route: 030
     Dates: start: 20030101
  2. ALTACE [Concomitant]
  3. LASIX [Concomitant]
  4. PLAVIX [Concomitant]
  5. NITRODUR PATCH (GLYCERYL TRINITRATE) [Concomitant]
  6. ASPIRIN [Concomitant]

REACTIONS (7)
  - CARDIAC FAILURE CONGESTIVE [None]
  - CONDITION AGGRAVATED [None]
  - GASTRIC CANCER [None]
  - GASTRIC ULCER [None]
  - HAEMATEMESIS [None]
  - MALAISE [None]
  - RENAL IMPAIRMENT [None]
